FAERS Safety Report 20359486 (Version 4)
Quarter: 2024Q1

REPORT INFORMATION
  Report Type: Report from Study
  Country: KR (occurrence: KR)
  Receive Date: 20220121
  Receipt Date: 20240123
  Transmission Date: 20240409
  Serious: Yes (Death, Life-Threatening, Hospitalization, Other)
  Sender: FDA-Public Use
  Company Number: KR-CELLTRION INC.-2022KR000524

PATIENT

DRUGS (12)
  1. INVESTIGATIONAL BIOSIMILARS [Suspect]
     Active Substance: INVESTIGATIONAL BIOSIMILARS
     Indication: Cervix carcinoma
     Dosage: 584MG(8 MG/KG) INITIAL LOADING DOSE, ONE TIME
     Route: 042
     Dates: start: 20220104, end: 20220112
  2. NERATINIB [Suspect]
     Active Substance: NERATINIB
     Indication: Cervix carcinoma
     Dosage: UNK
     Route: 048
     Dates: start: 20220104, end: 20220112
  3. CARVEDILOL [Concomitant]
     Active Substance: CARVEDILOL
     Indication: Hypertension
     Dosage: 12.5 MG (FREQUENCY: 1)
     Route: 048
     Dates: start: 2016, end: 20220114
  4. AMLODIPINE\OLMESARTAN [Concomitant]
     Active Substance: AMLODIPINE\OLMESARTAN
     Indication: Hypertension
     Dosage: 5/20 MG (FREQUENCY: 1)
     Route: 048
     Dates: start: 2016, end: 20220114
  5. OXCARBAZEPINE [Concomitant]
     Active Substance: OXCARBAZEPINE
     Indication: Seizure
     Dosage: 150 MG (FREQUENCY: 2)
     Route: 048
     Dates: start: 20211111, end: 20220116
  6. LEVETIRACETAM [Concomitant]
     Active Substance: LEVETIRACETAM
     Indication: Seizure
     Dosage: 1000 MG (FREQUENCY: 2)
     Route: 048
     Dates: start: 20211111, end: 20220116
  7. LAMOTRIGINE [Concomitant]
     Active Substance: LAMOTRIGINE
     Indication: Seizure
     Dosage: 25 MG (FREQUENCY: 2)
     Route: 048
     Dates: start: 20211212, end: 20220116
  8. ALFUZOSIN [Concomitant]
     Active Substance: ALFUZOSIN
     Indication: Neurogenic bladder
     Dosage: 10 MG (FREQUENCY: 1)
     Route: 048
     Dates: start: 20211029, end: 20220116
  9. ONDANSETRON [Concomitant]
     Active Substance: ONDANSETRON
     Indication: Nausea
     Dosage: 8 MG; FREQUENCY: 2
     Route: 048
     Dates: start: 20220111, end: 20220114
  10. URSODIOL [Concomitant]
     Active Substance: URSODIOL
     Indication: Hepatic failure
     Dosage: 200 MG; FREQUENCY: 3
     Route: 048
     Dates: start: 20220111, end: 20220115
  11. TRANEXAMIC ACID [Concomitant]
     Active Substance: TRANEXAMIC ACID
     Indication: Haemorrhage
     Dosage: 500 MG; FREQUENCY: 3
     Route: 042
     Dates: start: 20220113, end: 20220115
  12. CEFEPIME HYDROCHLORIDE [Concomitant]
     Active Substance: CEFEPIME HYDROCHLORIDE
     Indication: Pneumonia
     Dosage: 1000 MG; FREQUENCY: 3
     Route: 042
     Dates: start: 20220115, end: 20220115

REACTIONS (14)
  - Death [Fatal]
  - Haemorrhage [Fatal]
  - Gastrointestinal polyp haemorrhage [Fatal]
  - Intestinal mass [Fatal]
  - Haemoptysis [Fatal]
  - Pneumonia [Fatal]
  - Anaemia [Unknown]
  - Haematochezia [Unknown]
  - Blood bilirubin increased [Unknown]
  - Platelet count decreased [Unknown]
  - Diarrhoea [Unknown]
  - Pyrexia [Unknown]
  - Oxygen saturation decreased [Unknown]
  - Intentional product use issue [Unknown]

NARRATIVE: CASE EVENT DATE: 20220113
